FAERS Safety Report 19824243 (Version 2)
Quarter: 2021Q3

REPORT INFORMATION
  Report Type: Spontaneous
  Country: US (occurrence: US)
  Receive Date: 20210913
  Receipt Date: 20210920
  Transmission Date: 20211014
  Serious: Yes (Other)
  Sender: FDA-Public Use
  Company Number: US-TEVA-2021-US-1951714

PATIENT
  Age: 76 Year
  Sex: Female

DRUGS (2)
  1. METOPROLOL SUCCINATE ACTAVIS [Suspect]
     Active Substance: METOPROLOL SUCCINATE
     Indication: PRODUCT USED FOR UNKNOWN INDICATION
     Dosage: 50 MILLIGRAM DAILY;
     Route: 065
  2. METOPROLOL. [Suspect]
     Active Substance: METOPROLOL
     Route: 065

REACTIONS (4)
  - Abdominal pain upper [Unknown]
  - Stent placement [Unknown]
  - Myocardial infarction [Unknown]
  - COVID-19 [Unknown]
